FAERS Safety Report 24797927 (Version 3)
Quarter: 2025Q2

REPORT INFORMATION
  Report Type: Report from Study
  Country: IN (occurrence: IN)
  Receive Date: 20250102
  Receipt Date: 20250423
  Transmission Date: 20250716
  Serious: Yes (Other)
  Sender: NOVARTIS
  Company Number: IN-002147023-NVSC2023IN274082

PATIENT
  Sex: Male

DRUGS (3)
  1. TASIGNA [Suspect]
     Active Substance: NILOTINIB
     Indication: Chronic myeloid leukaemia
     Dosage: 300 MG, QD
     Route: 048
     Dates: start: 20230616
  2. TASIGNA [Suspect]
     Active Substance: NILOTINIB
     Dosage: 300 MG, QD
     Route: 048
     Dates: start: 20230617
  3. IMATINIB [Concomitant]
     Active Substance: IMATINIB
     Indication: Product used for unknown indication
     Route: 065

REACTIONS (9)
  - Diabetes mellitus [Unknown]
  - Chronic kidney disease [Unknown]
  - Pain [Unknown]
  - Rash pruritic [Unknown]
  - Urticaria papular [Unknown]
  - Laboratory test abnormal [Unknown]
  - Hypertension [Unknown]
  - Urine albumin/creatinine ratio abnormal [Unknown]
  - Off label use [Unknown]
